FAERS Safety Report 7370107-8 (Version None)
Quarter: 2011Q1

REPORT INFORMATION
  Report Type: 
  Country: None (occurrence: None)
  Receive Date: 20110323
  Receipt Date: 20110309
  Transmission Date: 20110831
  Serious: Yes (Other)
  Sender: FDA-Public Use
  Company Number: PHHY2011GB20851

PATIENT
  Age: 77 Year
  Sex: Female

DRUGS (3)
  1. OXCARBAZEPINE [Suspect]
     Dosage: 600 MG DAILY
  2. LACOSAMIDE [Suspect]
     Indication: EPILEPSY
     Dosage: 300 MG, DAILY
  3. OXCARBAZEPINE [Suspect]
     Indication: EPILEPSY
     Dosage: 750 MG, DAILY

REACTIONS (3)
  - NEUROTOXICITY [None]
  - DRUG INTERACTION [None]
  - DIPLOPIA [None]
